FAERS Safety Report 23148546 (Version 1)
Quarter: 2023Q4

REPORT INFORMATION
  Report Type: Spontaneous
  Country: US (occurrence: None)
  Receive Date: 20231106
  Receipt Date: 20231106
  Transmission Date: 20240110
  Serious: No
  Sender: FDA-Public Use
  Company Number: 2023A244374

PATIENT
  Sex: Female

DRUGS (1)
  1. FARXIGA [Suspect]
     Active Substance: DAPAGLIFLOZIN PROPANEDIOL
     Route: 048

REACTIONS (8)
  - Chest pain [Unknown]
  - Dizziness [Unknown]
  - Abdominal distension [Unknown]
  - Head discomfort [Unknown]
  - Nausea [Unknown]
  - Hypertension [Unknown]
  - Blood glucose increased [Unknown]
  - Sensation of foreign body [Unknown]
